FAERS Safety Report 16723645 (Version 1)
Quarter: 2019Q3

REPORT INFORMATION
  Report Type: Spontaneous
  Country: None (occurrence: GB)
  Receive Date: 20190821
  Receipt Date: 20190821
  Transmission Date: 20191005
  Serious: Yes (Other)
  Sender: FDA-Public Use
  Company Number: GB-ORION CORPORATION ORION PHARMA-TREX2019-2636

PATIENT
  Age: 77 Year
  Sex: Female

DRUGS (3)
  1. AZATHIOPRINE. [Suspect]
     Active Substance: AZATHIOPRINE
     Indication: LANGERHANS^ CELL HISTIOCYTOSIS
     Route: 065
     Dates: start: 2007, end: 2013
  2. MYCOPHENOLATE MOFETIL. [Suspect]
     Active Substance: MYCOPHENOLATE MOFETIL
     Indication: LANGERHANS^ CELL HISTIOCYTOSIS
     Route: 065
     Dates: start: 2013
  3. METHOTREXATE. [Suspect]
     Active Substance: METHOTREXATE
     Indication: LANGERHANS^ CELL HISTIOCYTOSIS
     Route: 065
     Dates: start: 2007

REACTIONS (3)
  - Pyoderma gangrenosum [Recovering/Resolving]
  - Langerhans^ cell histiocytosis [Recovering/Resolving]
  - Product use in unapproved indication [Unknown]
